FAERS Safety Report 7095975-9 (Version None)
Quarter: 2010Q4

REPORT INFORMATION
  Report Type: 
  Country: None (occurrence: None)
  Receive Date: 20101109
  Receipt Date: 20101109
  Transmission Date: 20110411
  Serious: No
  Sender: FDA-Public Use
  Company Number: None

PATIENT
  Sex: Female
  Weight: 63.5036 kg

DRUGS (18)
  1. ACTONEL [Suspect]
     Indication: OSTEOPOROSIS
     Dosage: 150MG MONTHLY PO
     Route: 048
     Dates: start: 20090801, end: 20101108
  2. ROZEREM [Concomitant]
  3. CALCIUM + VIT D [Concomitant]
  4. VALTREX [Concomitant]
  5. NEXIUM [Concomitant]
  6. SELENIUM/MAGNESIUM [Concomitant]
  7. BALANCE B [Concomitant]
  8. COZAAR [Concomitant]
  9. TOPROL-XL [Concomitant]
  10. M.V.I. [Concomitant]
  11. LUTEIN [Concomitant]
  12. ASPIRIN [Concomitant]
  13. VIT D [Concomitant]
  14. LIPITOR [Concomitant]
  15. FLONASE [Concomitant]
  16. RHYTHMOL [Concomitant]
  17. COUMADIN [Concomitant]
  18. ACETAMINOPHEN [Concomitant]

REACTIONS (2)
  - FEMUR FRACTURE [None]
  - PAIN [None]
